FAERS Safety Report 5845741-4 (Version None)
Quarter: 2008Q3

REPORT INFORMATION
  Report Type: 
  Country: None (occurrence: None)
  Receive Date: 20080814
  Receipt Date: 20080808
  Transmission Date: 20090109
  Serious: Yes (Other)
  Sender: FDA-Public Use
  Company Number: PHHY2008GB03419

PATIENT
  Sex: Female

DRUGS (3)
  1. TEGRETOL [Suspect]
     Indication: CONVULSION
     Dosage: 400 MG, BID
     Route: 048
     Dates: start: 20051101, end: 20080218
  2. VALPROATE SODIUM [Concomitant]
  3. CARBAMAZEPINE [Concomitant]

REACTIONS (5)
  - BALANCE DISORDER [None]
  - HYPERCHOLESTEROLAEMIA [None]
  - OPTIC NERVE DISORDER [None]
  - PROTEIN TOTAL ABNORMAL [None]
  - VISUAL ACUITY REDUCED [None]
